FAERS Safety Report 13174286 (Version 1)
Quarter: 2017Q1

REPORT INFORMATION
  Report Type: Spontaneous
  Country: US (occurrence: US)
  Receive Date: 20170131
  Receipt Date: 20170131
  Transmission Date: 20170428
  Serious: No
  Sender: FDA-Public Use
  Company Number: US-AMGEN-USASP2016169275

PATIENT
  Sex: Female

DRUGS (2)
  1. IMLYGIC [Suspect]
     Active Substance: TALIMOGENE LAHERPAREPVEC
     Indication: PRODUCT USED FOR UNKNOWN INDICATION
     Dosage: 0.3 ML, UNK
     Route: 065
  2. IMLYGIC [Suspect]
     Active Substance: TALIMOGENE LAHERPAREPVEC

REACTIONS (1)
  - Infection [Unknown]

NARRATIVE: CASE EVENT DATE: 2016
